FAERS Safety Report 9192112 (Version 1)
Quarter: 2013Q1

REPORT INFORMATION
  Report Type: Spontaneous
  Country: BR (occurrence: None)
  Receive Date: 20130325
  Receipt Date: 20130325
  Transmission Date: 20140127
  Serious: Yes (Death)
  Sender: FDA-Public Use
  Company Number: ENTC2013-0110

PATIENT
  Age: 87 Year
  Sex: Female

DRUGS (5)
  1. STALEVO [Suspect]
  2. HEIMER [Concomitant]
  3. RIVOTRIL [Concomitant]
  4. DONAREN [Concomitant]
  5. PHOSFOENEMA [Concomitant]

REACTIONS (1)
  - Death [None]
